FAERS Safety Report 8220901-6 (Version None)
Quarter: 2012Q1

REPORT INFORMATION
  Report Type: 
  Country: None (occurrence: None)
  Receive Date: 20120319
  Receipt Date: 20120308
  Transmission Date: 20120608
  Serious: Yes (Other)
  Sender: FDA-Public Use
  Company Number: CA-JNJFOC-20120304552

PATIENT
  Sex: Female

DRUGS (2)
  1. REMICADE [Suspect]
     Route: 042
     Dates: start: 20100923, end: 20120203
  2. REMICADE [Suspect]
     Indication: CROHN'S DISEASE
     Dosage: 0-2-6 INDUCTION
     Route: 042
     Dates: start: 20080101

REACTIONS (1)
  - LUPUS-LIKE SYNDROME [None]
